FAERS Safety Report 8564660-6 (Version None)
Quarter: 2012Q3

REPORT INFORMATION
  Report Type: 
  Country: None (occurrence: None)
  Receive Date: 20120803
  Receipt Date: 20120726
  Transmission Date: 20120928
  Serious: Yes (Hospitalization, Disabling, Other)
  Sender: FDA-Public Use
  Company Number: US-009507513-1109USA02130

PATIENT

DRUGS (13)
  1. ALENDRONATE SODIUM [Suspect]
     Dosage: 70 MG, UNK
     Route: 048
     Dates: start: 20080714, end: 20091125
  2. ALENDRONATE SODIUM [Suspect]
  3. FOSAMAX [Suspect]
     Indication: OSTEOPENIA
     Dosage: 70 MG, UNK
     Route: 048
     Dates: start: 19980101, end: 20100115
  4. FOSAMAX [Suspect]
     Dosage: 5 MG, QD
     Route: 048
     Dates: start: 20020213
  5. ALENDRONATE SODIUM [Suspect]
     Indication: OSTEOPOROSIS
     Dosage: 70 MG, UNK
     Route: 048
  6. CALCIUM (UNSPECIFIED) [Concomitant]
     Dosage: 1200 MG, QD
     Route: 048
  7. FOSAMAX [Suspect]
     Indication: OSTEOPOROSIS
     Dosage: 40 MG, QW
     Route: 048
     Dates: start: 20020116
  8. ALENDRONATE SODIUM [Suspect]
     Indication: OSTEOPENIA
  9. VITA C [Concomitant]
     Dosage: 1000 MG, QD
  10. MULTIVITE [Concomitant]
     Route: 048
  11. BENICAR [Concomitant]
     Dates: start: 19980101
  12. FOSAMAX [Suspect]
     Dosage: 35 MG, UNK
     Route: 048
     Dates: start: 20050102, end: 20050613
  13. ESTRACE [Concomitant]
     Indication: MENOPAUSE
     Dates: start: 19960101

REACTIONS (54)
  - CARDIAC DISORDER [None]
  - FALL [None]
  - HYPERLIPIDAEMIA [None]
  - RHINITIS ALLERGIC [None]
  - VENOUS INSUFFICIENCY [None]
  - CONJUNCTIVAL HAEMORRHAGE [None]
  - BRONCHITIS [None]
  - ROAD TRAFFIC ACCIDENT [None]
  - PANCREATITIS [None]
  - INSOMNIA [None]
  - INAPPROPRIATE SCHEDULE OF DRUG ADMINISTRATION [None]
  - ECZEMA [None]
  - VARICOSE VEIN [None]
  - MERALGIA PARAESTHETICA [None]
  - MUSCLE SPASMS [None]
  - CORNEAL ABRASION [None]
  - DYSLIPIDAEMIA [None]
  - TYPE 2 DIABETES MELLITUS [None]
  - HORMONE LEVEL ABNORMAL [None]
  - OVARIAN CYST [None]
  - CHROMATURIA [None]
  - FEMUR FRACTURE [None]
  - FRACTURE NONUNION [None]
  - DEAFNESS [None]
  - CHEST PAIN [None]
  - LOW TURNOVER OSTEOPATHY [None]
  - ANXIETY [None]
  - DECREASED APPETITE [None]
  - FATIGUE [None]
  - VITAMIN D DEFICIENCY [None]
  - HYPERSENSITIVITY [None]
  - BREAST CYST [None]
  - HYPERCALCAEMIA [None]
  - HAEMORRHOIDS [None]
  - KERATITIS [None]
  - BLOOD CHOLESTEROL INCREASED [None]
  - ASTHMA [None]
  - ROSACEA [None]
  - INTERVERTEBRAL DISC DISORDER [None]
  - ONYCHOMYCOSIS [None]
  - NAUSEA [None]
  - RENAL ARTERY STENOSIS [None]
  - OEDEMA PERIPHERAL [None]
  - COLON ADENOMA [None]
  - GASTRIC POLYPS [None]
  - CONJUNCTIVITIS ALLERGIC [None]
  - PROTEINURIA [None]
  - GALLBLADDER DISORDER [None]
  - DEPRESSION [None]
  - FIBROCYSTIC BREAST DISEASE [None]
  - BURSITIS [None]
  - ADVERSE DRUG REACTION [None]
  - BLOOD PRESSURE INCREASED [None]
  - BRONCHIAL HYPERREACTIVITY [None]
